FAERS Safety Report 6937546-8 (Version None)
Quarter: 2010Q3

REPORT INFORMATION
  Report Type: 
  Country: None (occurrence: None)
  Receive Date: 20100823
  Receipt Date: 20100816
  Transmission Date: 20110219
  Serious: Yes (Death)
  Sender: FDA-Public Use
  Company Number: US-AMGEN-QUU431816

PATIENT
  Sex: Female

DRUGS (2)
  1. NPLATE [Suspect]
     Indication: IDIOPATHIC THROMBOCYTOPENIC PURPURA
     Dates: start: 20100621
  2. CORTICOSTEROIDS [Concomitant]
     Dates: start: 20040624

REACTIONS (2)
  - CARDIAC ARREST [None]
  - SEPTIC SHOCK [None]
